FAERS Safety Report 6924106-8 (Version None)
Quarter: 2010Q3

REPORT INFORMATION
  Report Type: 
  Country: None (occurrence: None)
  Receive Date: 20100813
  Receipt Date: 20100809
  Transmission Date: 20110219
  Serious: Yes (Other)
  Sender: FDA-Public Use
  Company Number: US-AMGEN-QUU430017

PATIENT
  Sex: Male
  Weight: 71.8 kg

DRUGS (2)
  1. NPLATE [Suspect]
     Indication: IDIOPATHIC THROMBOCYTOPENIC PURPURA
     Dates: start: 20090714, end: 20090810
  2. CORTICOSTEROIDS [Concomitant]

REACTIONS (1)
  - DRUG RESISTANCE [None]
